FAERS Safety Report 5905478-X (Version None)
Quarter: 2008Q4

REPORT INFORMATION
  Report Type: 
  Country: None (occurrence: None)
  Receive Date: 20081001
  Receipt Date: 20081001
  Transmission Date: 20090506
  Serious: No
  Sender: FDA-Public Use
  Company Number: None

PATIENT
  Sex: Male
  Weight: 61.6 kg

DRUGS (1)
  1. CAMPATH [Suspect]
     Dosage: 3 MG

REACTIONS (2)
  - HYPONATRAEMIA [None]
  - LYMPHOPENIA [None]
